FAERS Safety Report 23255997 (Version 1)
Quarter: 2023Q4

REPORT INFORMATION
  Report Type: Spontaneous
  Country: US (occurrence: US)
  Receive Date: 20231204
  Receipt Date: 20231204
  Transmission Date: 20240110
  Serious: No
  Sender: FDA-Public Use
  Company Number: US-drreddys-SPO/USA/23/0187497

PATIENT
  Age: 2 Decade
  Sex: Female

DRUGS (1)
  1. TESTOSTERONE [Suspect]
     Active Substance: TESTOSTERONE
     Indication: Transgender hormonal therapy

REACTIONS (10)
  - Flushing [Recovered/Resolved]
  - Blood testosterone increased [Unknown]
  - Temperature intolerance [Recovered/Resolved]
  - Blood testosterone free increased [Unknown]
  - Anger [Recovered/Resolved]
  - Hyperhidrosis [Recovered/Resolved]
  - Nausea [Recovered/Resolved]
  - Hirsutism [Unknown]
  - Irritability [Recovered/Resolved]
  - Virilism [Recovered/Resolved]
